FAERS Safety Report 25086314 (Version 1)
Quarter: 2025Q1

REPORT INFORMATION
  Report Type: Spontaneous
  Country: US (occurrence: US)
  Receive Date: 20250317
  Receipt Date: 20250317
  Transmission Date: 20250409
  Serious: Yes (Other)
  Sender: ELI LILLY AND COMPANY
  Company Number: US-ELI_LILLY_AND_COMPANY-US202503005236

PATIENT
  Age: 65 Year

DRUGS (2)
  1. CYRAMZA [Suspect]
     Active Substance: RAMUCIRUMAB
     Indication: Product used for unknown indication
     Route: 065
     Dates: start: 20240906
  2. CYRAMZA [Suspect]
     Active Substance: RAMUCIRUMAB
     Route: 065

REACTIONS (4)
  - Hepatic cirrhosis [Unknown]
  - Paranoia [Unknown]
  - Hallucination [Unknown]
  - Posterior reversible encephalopathy syndrome [Unknown]
